FAERS Safety Report 14680604 (Version 2)
Quarter: 2018Q1

REPORT INFORMATION
  Report Type: Spontaneous
  Country: PT (occurrence: PT)
  Receive Date: 20180326
  Receipt Date: 20180330
  Transmission Date: 20180509
  Serious: Yes (Hospitalization, Other)
  Sender: FDA-Public Use
  Company Number: PT-ASTRAZENECA-2018SE35991

PATIENT
  Sex: Male

DRUGS (12)
  1. VILDAGLIPTIN [Concomitant]
     Active Substance: VILDAGLIPTIN
  2. QUETIAPINE FUMARATE. [Suspect]
     Active Substance: QUETIAPINE FUMARATE
     Route: 065
  3. POTASSIUM CHLORIDE. [Suspect]
     Active Substance: POTASSIUM CHLORIDE
     Route: 065
  4. FUROSEMIDE. [Suspect]
     Active Substance: FUROSEMIDE
     Route: 065
  5. IRBESARTAN. [Concomitant]
     Active Substance: IRBESARTAN
  6. AMLODIPINE + VALSARTAN [Concomitant]
  7. ATORVASTATIN [Suspect]
     Active Substance: ATORVASTATIN
     Route: 065
  8. WARFARIN [Suspect]
     Active Substance: WARFARIN
     Route: 065
  9. INSULIN [Concomitant]
     Active Substance: INSULIN NOS
  10. FUROSEMIDE. [Suspect]
     Active Substance: FUROSEMIDE
     Route: 065
  11. PANTOPRAZOLE [Suspect]
     Active Substance: PANTOPRAZOLE
     Route: 065
  12. BETAHISTINE [Concomitant]
     Active Substance: BETAHISTINE

REACTIONS (3)
  - Cardiac failure [Unknown]
  - Intercepted medication error [Unknown]
  - Incorrect drug administration rate [Unknown]
